FAERS Safety Report 18311823 (Version 5)
Quarter: 2021Q1

REPORT INFORMATION
  Report Type: Report from Study
  Country: CO (occurrence: CO)
  Receive Date: 20200925
  Receipt Date: 20210211
  Transmission Date: 20210419
  Serious: Yes (Hospitalization, Other)
  Sender: FDA-Public Use
  Company Number: NVSC2020CO256165

PATIENT
  Age: 25 Year
  Sex: Female
  Weight: 54 kg

DRUGS (3)
  1. CERTOLIZUMAB [Concomitant]
     Active Substance: CERTOLIZUMAB
     Indication: PRODUCT USED FOR UNKNOWN INDICATION
     Dosage: UNK UNK, UNKNOWN
     Route: 065
     Dates: start: 20210203
  2. COSENTYX [Suspect]
     Active Substance: SECUKINUMAB
     Indication: ANKYLOSING SPONDYLITIS
     Dosage: 150 MG, QMO
     Route: 058
     Dates: start: 201910, end: 202008
  3. COSENTYX [Suspect]
     Active Substance: SECUKINUMAB
     Dosage: 150 UNK
     Route: 058
     Dates: start: 202007

REACTIONS (13)
  - Abdominal mass [Unknown]
  - Joint swelling [Unknown]
  - Uveitis [Unknown]
  - Sjogren^s syndrome [Unknown]
  - Coeliac disease [Unknown]
  - Polycystic ovaries [Unknown]
  - Escherichia infection [Not Recovered/Not Resolved]
  - Back pain [Not Recovered/Not Resolved]
  - Inflammation [Unknown]
  - Constipation [Not Recovered/Not Resolved]
  - Diarrhoea [Unknown]
  - Cholelithiasis [Unknown]
  - Haematochezia [Unknown]

NARRATIVE: CASE EVENT DATE: 20200424
